FAERS Safety Report 15686127 (Version 1)
Quarter: 2018Q4

REPORT INFORMATION
  Report Type: Report from Study
  Country: US (occurrence: US)
  Receive Date: 20181204
  Receipt Date: 20181204
  Transmission Date: 20190205
  Serious: Yes (Death)
  Sender: FDA-Public Use
  Company Number: US-TAIHO ONCOLOGY  INC-EU-2018-02231

PATIENT
  Age: 56 Year
  Sex: Male

DRUGS (6)
  1. BETHANECHOL CHLORIDE. [Concomitant]
     Active Substance: BETHANECHOL CHLORIDE
  2. ERYTHROMYCIN. [Concomitant]
     Active Substance: ERYTHROMYCIN
     Dosage: FORM STRENGTH : 5MG/GR
  3. PREDNISONE. [Concomitant]
     Active Substance: PREDNISONE
  4. LONSURF [Suspect]
     Active Substance: TIPIRACIL HYDROCHLORIDE\TRIFLURIDINE
     Indication: PRODUCT USED FOR UNKNOWN INDICATION
     Dosage: UNIT DOSE: TWO 20 MG TABLETS AND ONE 15 MG TABLET?CURRENT CYCLE UNKNOWN. ACCREDO FIRST SHIPPED JUL/2
     Route: 048
  5. OXYCODONE HYDROCHLORIDE. [Concomitant]
     Active Substance: OXYCODONE HYDROCHLORIDE
  6. ONDANSETRON ODT [Concomitant]
     Active Substance: ONDANSETRON

REACTIONS (1)
  - Death [Fatal]

NARRATIVE: CASE EVENT DATE: 20181119
